FAERS Safety Report 13896936 (Version 1)
Quarter: 2017Q3

REPORT INFORMATION
  Report Type: Report from Study
  Country: US (occurrence: US)
  Receive Date: 20170823
  Receipt Date: 20170823
  Transmission Date: 20171127
  Serious: Yes (Hospitalization, Other)
  Sender: FDA-Public Use
  Company Number: US-BAYER-2017-081558

PATIENT
  Age: 66 Year
  Sex: Male

DRUGS (2)
  1. STIVARGA [Suspect]
     Active Substance: REGORAFENIB
     Indication: COLON CANCER
     Dosage: DAILY DOSE 160 MG 21 ON 7 OFF
     Route: 048
     Dates: start: 20170327, end: 201704
  2. STIVARGA [Suspect]
     Active Substance: REGORAFENIB
     Indication: COLON CANCER
     Dosage: 80 MG DAILY DOSE
     Route: 048
     Dates: start: 20170718

REACTIONS (7)
  - Frequent bowel movements [None]
  - Surgery [None]
  - Blood count abnormal [None]
  - Asthenia [None]
  - Constipation [None]
  - Faeces discoloured [None]
  - Fatigue [None]

NARRATIVE: CASE EVENT DATE: 201707
